FAERS Safety Report 5869806-6 (Version None)
Quarter: 2008Q3

REPORT INFORMATION
  Report Type: 
  Country: None (occurrence: None)
  Receive Date: 20080828
  Receipt Date: 20080826
  Transmission Date: 20090109
  Serious: Yes (Hospitalization, Other)
  Sender: FDA-Public Use
  Company Number: THQ2008A00800

PATIENT
  Age: 57 Year
  Sex: Female

DRUGS (13)
  1. ACTOS [Suspect]
     Indication: TYPE 2 DIABETES MELLITUS
     Dosage: 30 MG (30 MG,1 IN 1 D), PER ORAL;  15 MG (15 MG,1 IN 1 D), PER ORAL
     Route: 048
     Dates: start: 20080205, end: 20080506
  2. ACTOS [Suspect]
     Indication: TYPE 2 DIABETES MELLITUS
     Dosage: 30 MG (30 MG,1 IN 1 D), PER ORAL;  15 MG (15 MG,1 IN 1 D), PER ORAL
     Route: 048
     Dates: start: 20080101
  3. ACTOS [Suspect]
     Indication: TYPE 2 DIABETES MELLITUS
     Dosage: 30 MG (30 MG,1 IN 1 D), PER ORAL;  15 MG (15 MG,1 IN 1 D), PER ORAL
     Route: 048
     Dates: start: 20080601
  4. VEROSPIRON (SPIRONOLACTONE) [Concomitant]
  5. HUMALOG [Concomitant]
  6. LANTUS [Concomitant]
  7. SPECIFIC ANTIRHEUMATIC AGENTS [Concomitant]
  8. DAPRIL (LISINOPRIL DIHYDRATE) [Concomitant]
  9. BETAXA (BETAXOLOL HYDROCHLORIDE) [Concomitant]
  10. FURON (FUROSEMIDE) [Concomitant]
  11. FENOFIBRATE [Concomitant]
  12. ATORIS (ATORVASTATIN) [Concomitant]
  13. MEDRIN (EMBRAMINE TEOCLATE) [Concomitant]

REACTIONS (4)
  - DYSPNOEA [None]
  - OEDEMA PERIPHERAL [None]
  - POSTMENOPAUSAL HAEMORRHAGE [None]
  - WEIGHT INCREASED [None]
